FAERS Safety Report 8222082-1 (Version None)
Quarter: 2012Q1

REPORT INFORMATION
  Report Type: 
  Country: None (occurrence: None)
  Receive Date: 20120320
  Receipt Date: 20120312
  Transmission Date: 20120608
  Serious: Yes (Other)
  Sender: FDA-Public Use
  Company Number: US-JNJFOC-20120306377

PATIENT
  Age: 68 Year
  Sex: Male

DRUGS (9)
  1. ELOCON [Concomitant]
     Route: 065
  2. PROVENTIL [Concomitant]
     Route: 065
  3. VIAGRA [Concomitant]
     Route: 065
  4. SYMBICORT [Concomitant]
     Route: 065
  5. NUCYNTA ER [Suspect]
     Indication: PAIN
     Route: 048
     Dates: end: 20120311
  6. SIMVASTATIN [Concomitant]
     Indication: BLOOD CHOLESTEROL
     Route: 065
  7. CARBATOL [Concomitant]
     Route: 065
  8. ASPIRIN [Concomitant]
     Route: 065
  9. ALBUTEROL [Concomitant]
     Route: 065

REACTIONS (1)
  - ASTHMA [None]
